FAERS Safety Report 8084442-1 (Version None)
Quarter: 2012Q1

REPORT INFORMATION
  Report Type: 
  Country: None (occurrence: None)
  Receive Date: 20120128
  Receipt Date: 20110317
  Transmission Date: 20120608
  Serious: No
  Sender: FDA-Public Use
  Company Number: US-ABBOTT-11P-163-0712054-00

PATIENT
  Age: 51 Year
  Sex: Male
  Weight: 88.53 kg

DRUGS (5)
  1. HUMIRA [Suspect]
     Indication: RHEUMATOID ARTHRITIS
     Dosage: WAS ON HOLD DUE TO RESPIRATORY INFECTION, PATIENT CONTINUED THERAPY ON UNKNOWN DATE
     Dates: start: 20101201, end: 20110101
  2. HUMIRA [Suspect]
     Dates: start: 20110101
  3. OMEPRAZOLE [Concomitant]
     Indication: GASTROOESOPHAGEAL REFLUX DISEASE
  4. SULFASALAZINE [Concomitant]
     Indication: RHEUMATOID ARTHRITIS
  5. VICODIN [Concomitant]
     Indication: RHEUMATOID ARTHRITIS

REACTIONS (6)
  - RESPIRATORY TRACT INFECTION [None]
  - STAPHYLOCOCCAL INFECTION [None]
  - ACNE [None]
  - SWELLING FACE [None]
  - ABSCESS [None]
  - LIP SWELLING [None]
